FAERS Safety Report 19899977 (Version 1)
Quarter: 2021Q3

REPORT INFORMATION
  Report Type: Spontaneous
  Country: US (occurrence: US)
  Receive Date: 20210930
  Receipt Date: 20210930
  Transmission Date: 20211014
  Serious: No
  Sender: FDA-Public Use
  Company Number: US-GLAXOSMITHKLINE-US2021AMR202342

PATIENT

DRUGS (1)
  1. SOTROVIMAB FOR COVID?19 BY INTERIM ORDER/EMERGENCY USE AUTHORIZATION [Suspect]
     Active Substance: SOTROVIMAB
     Indication: COVID-19 PROPHYLAXIS
     Dosage: UNK
     Dates: start: 2021

REACTIONS (2)
  - SARS-CoV-2 test false positive [Unknown]
  - Product use in unapproved indication [Unknown]

NARRATIVE: CASE EVENT DATE: 2021
